FAERS Safety Report 8607056-0 (Version None)
Quarter: 2012Q3

REPORT INFORMATION
  Report Type: 
  Country: None (occurrence: None)
  Receive Date: 20120821
  Receipt Date: 20120806
  Transmission Date: 20120928
  Serious: Yes (Other)
  Sender: FDA-Public Use
  Company Number: US-JNJCP-30000124078

PATIENT
  Age: 43 Year
  Sex: Female
  Weight: 70 kg

DRUGS (3)
  1. LOESTRIN FE 1/20 [Concomitant]
     Indication: CONTRACEPTION
     Dosage: ONCE A DAY
  2. RESTASIS [Concomitant]
     Dosage: TWICE A DAY
  3. NEUTROGENAA? ULTRA SHEER BODY MIST SUNBLOCK SPRAY SPF30 [Suspect]
     Dosage: A LITTLE BIT AMOUNT ON FINGER TIPS ON HER CHEEK BONES, NOSE AND FOREHEAD, ONCE
     Route: 061
     Dates: start: 20120803, end: 20120803

REACTIONS (6)
  - EYE SWELLING [None]
  - APPLICATION SITE SWELLING [None]
  - APPLICATION SITE ERYTHEMA [None]
  - PARAESTHESIA ORAL [None]
  - APPLICATION SITE REACTION [None]
  - APPLICATION SITE PAIN [None]
